FAERS Safety Report 16224053 (Version 1)
Quarter: 2019Q2

REPORT INFORMATION
  Report Type: Report from Study
  Country: US (occurrence: US)
  Receive Date: 20190422
  Receipt Date: 20190422
  Transmission Date: 20190711
  Serious: Yes (Hospitalization)
  Sender: FDA-Public Use
  Company Number: US-TEVA-2019-US-1039684

PATIENT
  Age: 55 Year
  Sex: Male

DRUGS (10)
  1. SUPER B-50 [Concomitant]
  2. AMPYRA [Concomitant]
     Active Substance: DALFAMPRIDINE
  3. COPAXONE [Suspect]
     Active Substance: GLATIRAMER ACETATE
     Indication: MULTIPLE SCLEROSIS
     Route: 058
     Dates: start: 20150821
  4. MAGNESIUM [Concomitant]
     Active Substance: MAGNESIUM
  5. CENTRUM [Concomitant]
     Active Substance: VITAMINS
  6. FISH OIL [Concomitant]
     Active Substance: FISH OIL
  7. VITAMIN D3 [Concomitant]
     Active Substance: CHOLECALCIFEROL
  8. CLONAZEPAM. [Concomitant]
     Active Substance: CLONAZEPAM
  9. FINASTERIDE. [Concomitant]
     Active Substance: FINASTERIDE
  10. VESICARE [Concomitant]
     Active Substance: SOLIFENACIN SUCCINATE

REACTIONS (1)
  - Fall [Not Recovered/Not Resolved]

NARRATIVE: CASE EVENT DATE: 2019
